FAERS Safety Report 25500810 (Version 1)
Quarter: 2025Q3

REPORT INFORMATION
  Report Type: Report from Study
  Country: US (occurrence: US)
  Receive Date: 20250701
  Receipt Date: 20250701
  Transmission Date: 20251021
  Serious: Yes (Hospitalization, Other)
  Sender: MYLAN
  Company Number: US-MYLANLABS-2025M1008554

PATIENT
  Age: 59 Year
  Sex: Male

DRUGS (4)
  1. GLATIRAMER ACETATE [Suspect]
     Active Substance: GLATIRAMER ACETATE
     Indication: Multiple sclerosis
     Dosage: 40 MILLIGRAM, 3XW (THREE TIMES A WEEK)
  2. GLATIRAMER ACETATE [Suspect]
     Active Substance: GLATIRAMER ACETATE
     Dosage: 40 MILLIGRAM, 3XW (THREE TIMES A WEEK)
     Route: 058
  3. GLATIRAMER ACETATE [Suspect]
     Active Substance: GLATIRAMER ACETATE
     Dosage: 40 MILLIGRAM, 3XW (THREE TIMES A WEEK)
     Route: 058
  4. GLATIRAMER ACETATE [Suspect]
     Active Substance: GLATIRAMER ACETATE
     Dosage: 40 MILLIGRAM, 3XW (THREE TIMES A WEEK)

REACTIONS (18)
  - Multiple sclerosis [Unknown]
  - Burns third degree [Unknown]
  - Arthritis [Unknown]
  - Thoracic operation [Unknown]
  - Brain operation [Unknown]
  - Sinus operation [Unknown]
  - Renal surgery [Unknown]
  - Thyroid operation [Unknown]
  - Electrocardiogram abnormal [Unknown]
  - Neoplasm [Recovered/Resolved]
  - Mental impairment [Unknown]
  - Nerve injury [Unknown]
  - Injection site pain [Unknown]
  - Scar [Unknown]
  - Fall [Unknown]
  - Sensory loss [Unknown]
  - Gait disturbance [Unknown]
  - Wrong device used [Unknown]

NARRATIVE: CASE EVENT DATE: 20250501
